FAERS Safety Report 10272872 (Version 1)
Quarter: 2014Q2

REPORT INFORMATION
  Report Type: Spontaneous
  Country: US (occurrence: None)
  Receive Date: 20140630
  Receipt Date: 20140630
  Transmission Date: 20141212
  Serious: Yes (Other)
  Sender: FDA-Public Use
  Company Number: 2014VER00050

PATIENT
  Age: 54 Year
  Sex: Female

DRUGS (1)
  1. MYORISAN 40 MG (ISOTRETINOIN)CAPSULE [Suspect]
     Dates: start: 20120402, end: 20140318

REACTIONS (1)
  - Hysterectomy [None]
